FAERS Safety Report 8681359 (Version 4)
Quarter: 2012Q4

REPORT INFORMATION
  Report Type: 
  Country: US (occurrence: US)
  Receive Date: 20120725
  Receipt Date: 20121010
  Transmission Date: 20130627
  Serious: No
  Sender: FDA-Public Use
  Company Number: US-PFIZER INC-2012176176

PATIENT
  Age: 74 Year
  Sex: Female

DRUGS (8)
  1. SUTENT [Suspect]
     Indication: NEUROENDOCRINE CARCINOMA
     Dosage: 37.5 mg, daily
     Route: 048
     Dates: start: 20120409, end: 20120726
  2. SUTENT [Suspect]
     Dosage: 37.5 mg, daily
     Route: 048
     Dates: start: 201204, end: 201208
  3. SANDOSTATIN [Concomitant]
     Indication: NEUROENDOCRINE CARCINOMA
     Dosage: 20 mg, q month
     Dates: start: 20101014
  4. SANDOSTATIN [Concomitant]
     Dosage: 20 mg, every 4 weeks
     Route: 030
     Dates: start: 20101130
  5. ATENOLOL [Concomitant]
     Indication: HYPERTENSION
     Dosage: 50 mg, daily
     Route: 048
     Dates: start: 2010
  6. SYNTHROID [Concomitant]
     Indication: HYPOTHYROIDISM
     Dosage: 100 ug, daily
     Route: 048
     Dates: start: 2010
  7. CHOLESTYRAMINE RESIN [Concomitant]
     Indication: DIARRHOEA
     Dosage: 1 packet tid
     Dates: start: 20120726
  8. HYDROCHLOROTHIAZIDE [Concomitant]
     Indication: HYPERTENSION
     Dosage: 25 mg, daily

REACTIONS (6)
  - Stomatitis [Recovered/Resolved with Sequelae]
  - Fatigue [Unknown]
  - Diarrhoea [Recovered/Resolved with Sequelae]
  - Disease progression [Unknown]
  - Neuroendocrine carcinoma [Unknown]
  - Blood chromogranin A increased [Unknown]
